FAERS Safety Report 4685141-6 (Version None)
Quarter: 2005Q2

REPORT INFORMATION
  Report Type: 
  Country: None (occurrence: None)
  Receive Date: 20050603
  Receipt Date: 20050524
  Transmission Date: 20051028
  Serious: Yes (Hospitalization)
  Sender: FDA-Public Use
  Company Number: 2005078837

PATIENT
  Age: 51 Year
  Sex: Male

DRUGS (3)
  1. NELFINAVIR MESILATE (NELFINAVIR MESILATE) [Suspect]
     Indication: HIV INFECTION
  2. ZIDOVUDINE [Suspect]
     Indication: HIV INFECTION
  3. LAMIVUDINE [Suspect]
     Indication: HIV INFECTION

REACTIONS (4)
  - ASTHENIA [None]
  - DYSPHAGIA [None]
  - MUSCULAR WEAKNESS [None]
  - POLYMYOSITIS [None]
